FAERS Safety Report 9677530 (Version 1)
Quarter: 2013Q4

REPORT INFORMATION
  Report Type: Report from Study
  Country: CA (occurrence: CA)
  Receive Date: 20131108
  Receipt Date: 20131108
  Transmission Date: 20140711
  Serious: Yes (Hospitalization)
  Sender: FDA-Public Use
  Company Number: CA-JNJFOC-20131100443

PATIENT
  Age: 28 Year
  Sex: Male

DRUGS (1)
  1. REMICADE [Suspect]
     Indication: BEHCET^S SYNDROME
     Route: 042

REACTIONS (2)
  - Iritis [Not Recovered/Not Resolved]
  - Off label use [Unknown]
